FAERS Safety Report 6615923-2 (Version None)
Quarter: 2010Q1

REPORT INFORMATION
  Report Type: 
  Country: None (occurrence: None)
  Receive Date: 20100305
  Receipt Date: 20100222
  Transmission Date: 20100710
  Serious: Yes (Other)
  Sender: FDA-Public Use
  Company Number: AU-JNJCH-2010004790

PATIENT
  Age: 11 Month
  Sex: Male

DRUGS (1)
  1. CODRAL DAY + NIGHT NEW FORMULA (NIGHT) [Suspect]
     Indication: DRUG USE FOR UNKNOWN INDICATION
     Dosage: TEXT:UNSPECIFIED
     Route: 048
     Dates: start: 20100201, end: 20100201

REACTIONS (5)
  - DRUG EXPOSURE VIA BREAST MILK [None]
  - LETHARGY [None]
  - LISTLESS [None]
  - SOMNOLENCE [None]
  - VOMITING [None]
